FAERS Safety Report 10365946 (Version 3)
Quarter: 2014Q3

REPORT INFORMATION
  Report Type: Spontaneous
  Country: JP (occurrence: JP)
  Receive Date: 20140806
  Receipt Date: 20140904
  Transmission Date: 20150326
  Serious: Yes (Other)
  Sender: FDA-Public Use
  Company Number: JP-ASTELLAS-2014JP013619

PATIENT
  Age: 79 Year
  Sex: Female
  Weight: 57 kg

DRUGS (3)
  1. FLOXIN [Concomitant]
     Active Substance: OFLOXACIN
     Indication: CYSTITIS
     Route: 048
     Dates: start: 20140301, end: 20140305
  2. FLOXIN [Concomitant]
     Active Substance: OFLOXACIN
     Route: 048
     Dates: start: 20140624
  3. VESICARE [Suspect]
     Active Substance: SOLIFENACIN SUCCINATE
     Indication: HYPERTONIC BLADDER
     Route: 048
     Dates: start: 20140301, end: 20140630

REACTIONS (1)
  - Urinary retention [Not Recovered/Not Resolved]

NARRATIVE: CASE EVENT DATE: 20140630
